FAERS Safety Report 5879603-3 (Version None)
Quarter: 2008Q3

REPORT INFORMATION
  Report Type: 
  Country: None (occurrence: None)
  Receive Date: 20080912
  Receipt Date: 20080909
  Transmission Date: 20090109
  Serious: Yes (Other)
  Sender: FDA-Public Use
  Company Number: US-AVENTIS-200815903US

PATIENT
  Age: 70 Year
  Sex: Female

DRUGS (1)
  1. LANTUS [Suspect]
     Dosage: DOSE: UNK

REACTIONS (4)
  - BLINDNESS [None]
  - BLOOD GLUCOSE INCREASED [None]
  - UNEVALUABLE EVENT [None]
  - VITRECTOMY [None]
